FAERS Safety Report 4683515-0 (Version None)
Quarter: 2005Q2

REPORT INFORMATION
  Report Type: 
  Country: None (occurrence: None)
  Receive Date: 20050602
  Receipt Date: 20050210
  Transmission Date: 20051028
  Serious: No
  Sender: FDA-Public Use
  Company Number: 200510061BWH

PATIENT
  Age: 59 Year
  Sex: Male
  Weight: 97.5234 kg

DRUGS (2)
  1. LEVITRA [Suspect]
     Indication: ERECTILE DYSFUNCTION
     Dosage: 10 MG, TOTAL DAILY, ORAL
     Route: 048
     Dates: start: 20050109
  2. ZYLOPRIM [Concomitant]

REACTIONS (4)
  - BURNING SENSATION [None]
  - ERECTILE DYSFUNCTION [None]
  - FLUSHING [None]
  - ORAL DISCOMFORT [None]
